FAERS Safety Report 15223593 (Version 3)
Quarter: 2018Q4

REPORT INFORMATION
  Report Type: Spontaneous
  Country: US (occurrence: US)
  Receive Date: 20180731
  Receipt Date: 20181012
  Transmission Date: 20190204
  Serious: No
  Sender: FDA-Public Use
  Company Number: US-009507513-1807USA006180

PATIENT
  Age: 20 Year
  Sex: Female
  Weight: 63.49 kg

DRUGS (1)
  1. NEXPLANON [Suspect]
     Active Substance: ETONOGESTREL
     Indication: PRODUCT USED FOR UNKNOWN INDICATION
     Dosage: IMPLANT IN HER LEFT ARM
     Route: 059
     Dates: start: 20161005

REACTIONS (4)
  - Mood swings [Unknown]
  - Surgery [Unknown]
  - Pain [Unknown]
  - Device breakage [Unknown]

NARRATIVE: CASE EVENT DATE: 2018
